FAERS Safety Report 23204525 (Version 2)
Quarter: 2024Q1

REPORT INFORMATION
  Report Type: Report from Study
  Country: US (occurrence: US)
  Receive Date: 20231120
  Receipt Date: 20240106
  Transmission Date: 20240409
  Serious: Yes (Other)
  Sender: FDA-Public Use
  Company Number: US-JNJFOC-20231129900

PATIENT
  Age: 74 Year
  Sex: Male

DRUGS (7)
  1. ERLEADA [Suspect]
     Active Substance: APALUTAMIDE
     Indication: Prostate cancer
     Dosage: 60 MG X 4 TABLETS.
     Route: 048
     Dates: start: 201606
  2. COVID-19 VACCINE [Concomitant]
     Indication: Prophylaxis
     Route: 065
     Dates: start: 20210223
  3. COVID-19 VACCINE [Concomitant]
     Dosage: BOOSTER DOSE
     Route: 065
     Dates: start: 20210318
  4. COVID-19 VACCINE [Concomitant]
     Dosage: BOOSTER DOSE
     Route: 065
     Dates: start: 20210928
  5. COVID-19 VACCINE [Concomitant]
     Dosage: BOOSTER DOSE
     Route: 065
     Dates: start: 20220422
  6. COVID-19 VACCINE [Concomitant]
     Dosage: BOOSTER DOSE
     Route: 065
     Dates: start: 20221005
  7. COVID-19 VACCINE [Concomitant]
     Dosage: BOOSTER DOSE
     Route: 065
     Dates: start: 20230429

REACTIONS (1)
  - Product dose omission issue [Unknown]

NARRATIVE: CASE EVENT DATE: 20231108
